FAERS Safety Report 7628830-3 (Version None)
Quarter: 2011Q3

REPORT INFORMATION
  Report Type: 
  Country: None (occurrence: None)
  Receive Date: 20110720
  Receipt Date: 20110720
  Transmission Date: 20111222
  Serious: Yes (Other)
  Sender: FDA-Public Use
  Company Number: None

PATIENT
  Age: 27 Year
  Sex: Female

DRUGS (3)
  1. ENGERIX-B [Concomitant]
     Route: 030
     Dates: start: 20110217
  2. ADACEL [Concomitant]
     Dosage: INTRAMUSCULAR, ARM
     Route: 030
     Dates: start: 20110217
  3. TUBERSOL [Suspect]
     Dosage: INTRADERMAL, FOREARM LE
     Route: 023

REACTIONS (4)
  - PRURITUS [None]
  - INJECTION SITE INDURATION [None]
  - RASH ERYTHEMATOUS [None]
  - INJECTION SITE OEDEMA [None]
